FAERS Safety Report 15227274 (Version 2)
Quarter: 2018Q3

REPORT INFORMATION
  Report Type: Spontaneous
  Country: US (occurrence: US)
  Receive Date: 20180801
  Receipt Date: 20180807
  Transmission Date: 20181010
  Serious: Yes (Hospitalization, Other)
  Sender: FDA-Public Use
  Company Number: US-GLENMARK PHARMACEUTICALS-2018GMK036791

PATIENT
  Age: 33 Year
  Sex: Male

DRUGS (2)
  1. GABAPENTIN. [Suspect]
     Active Substance: GABAPENTIN
     Indication: PRODUCT USED FOR UNKNOWN INDICATION
     Dosage: 7 DF, UNK, IN TOTAL
     Route: 065
  2. HEROIN [Interacting]
     Active Substance: DIAMORPHINE
     Indication: PRODUCT USED FOR UNKNOWN INDICATION
     Dosage: UNK
     Route: 065

REACTIONS (7)
  - Hypoxia [Recovering/Resolving]
  - Somnolence [Not Recovered/Not Resolved]
  - Pulmonary oedema [Unknown]
  - Depressed level of consciousness [Unknown]
  - Potentiating drug interaction [Unknown]
  - Bradypnoea [Recovering/Resolving]
  - Drug abuse [Unknown]

NARRATIVE: CASE EVENT DATE: 201807
